FAERS Safety Report 4961826-9 (Version None)
Quarter: 2006Q1

REPORT INFORMATION
  Report Type: 
  Country: None (occurrence: None)
  Receive Date: 20060329
  Receipt Date: 20060321
  Transmission Date: 20060701
  Serious: Yes (Death)
  Sender: FDA-Public Use
  Company Number: 13762

PATIENT
  Age: 32 Year
  Sex: Male

DRUGS (2)
  1. VINCRISTINE [Suspect]
     Indication: ACUTE MYELOID LEUKAEMIA
     Dosage: 1.4 MG/M2 WEEKLY IT
     Route: 037
  2. METHOTREXATE [Concomitant]

REACTIONS (5)
  - DIAPHRAGMATIC PARALYSIS [None]
  - IATROGENIC INJURY [None]
  - INCORRECT ROUTE OF DRUG ADMINISTRATION [None]
  - PARALYSIS [None]
  - RESPIRATORY ARREST [None]
